FAERS Safety Report 6061908-7 (Version None)
Quarter: 2009Q1

REPORT INFORMATION
  Report Type: 
  Country: None (occurrence: None)
  Receive Date: 20090202
  Receipt Date: 20090122
  Transmission Date: 20090719
  Serious: Yes (Other)
  Sender: FDA-Public Use
  Company Number: PHHY2009BR02574

PATIENT
  Sex: Female
  Weight: 78 kg

DRUGS (7)
  1. GALVUS MET COMBIPACK [Suspect]
     Indication: TYPE 2 DIABETES MELLITUS
     Dosage: 2 TABLETS IN THE MORNING AND IN THE AFTERNOON
     Route: 048
     Dates: start: 20071001
  2. ATENOLOL [Concomitant]
     Indication: HYPERTENSION
     Dosage: 1 TABLET (25MG) DAILY
     Route: 048
  3. DIOVAN [Concomitant]
     Indication: HYPERTENSION
     Dosage: 1 TABLET (160/5MG) DAILY
     Route: 048
  4. SYNTHROID [Concomitant]
     Indication: HYPOTHYROIDISM
     Dosage: 1 TABLET DAILY
     Route: 048
  5. GLUCOVANCE [Concomitant]
     Indication: TYPE 2 DIABETES MELLITUS
     Dosage: ONE TABLET IN THE AFTERNOON
     Route: 048
  6. GALVUS [Concomitant]
     Dosage: 50 MG
     Dates: start: 20090121
  7. GLIBENCLAMIDE [Concomitant]

REACTIONS (7)
  - ABDOMINAL PAIN UPPER [None]
  - DYSGEUSIA [None]
  - HEPATIC STEATOSIS [None]
  - MALAISE [None]
  - NAUSEA [None]
  - PANCREATIC CYST [None]
  - VOMITING [None]
